FAERS Safety Report 5814700-X (Version None)
Quarter: 2008Q3

REPORT INFORMATION
  Report Type: 
  Country: None (occurrence: None)
  Receive Date: 20080718
  Receipt Date: 20080407
  Transmission Date: 20090109
  Serious: No
  Sender: FDA-Public Use
  Company Number: US-KINGPHARMUSA00001-K200800420

PATIENT

DRUGS (5)
  1. LEVOXYL [Suspect]
     Indication: HYPOTHYROIDISM
     Dosage: 150 MCG, QD
     Route: 048
     Dates: start: 20060401
  2. PRAVASTATIN [Concomitant]
     Dosage: UNK, UNK
     Route: 048
  3. ATENOLOL [Concomitant]
     Dosage: UNK, UNK
     Route: 048
  4. DEPAKOTE [Concomitant]
     Dosage: UNK, UNK
     Route: 048
  5. NORCO [Concomitant]
     Dosage: UNK, UNK
     Route: 048

REACTIONS (3)
  - DRUG INEFFECTIVE [None]
  - FATIGUE [None]
  - SLUGGISHNESS [None]
